FAERS Safety Report 5476638-X (Version None)
Quarter: 2007Q4

REPORT INFORMATION
  Report Type: 
  Country: None (occurrence: None)
  Receive Date: 20071004
  Receipt Date: 20070921
  Transmission Date: 20080405
  Serious: Yes (Other)
  Sender: FDA-Public Use
  Company Number: CA-KINGPHARMUSA00001-K200701232

PATIENT

DRUGS (5)
  1. EPIPEN [Suspect]
     Indication: ANAPHYLACTIC REACTION
     Dosage: .3 MG, SINGLE
     Route: 023
     Dates: start: 20070401, end: 20070401
  2. ALTACE [Concomitant]
     Indication: HYPERTENSION
     Dosage: 5 MG, QD
     Route: 048
     Dates: start: 20060901
  3. VENTOLIN [Concomitant]
     Indication: ASTHMA
     Dosage: UNK, UNK
  4. FLOVENT [Concomitant]
     Indication: ASTHMA
  5. MARVELON [Concomitant]

REACTIONS (3)
  - ACCIDENTAL EXPOSURE [None]
  - DISABILITY [None]
  - PAIN IN EXTREMITY [None]
